FAERS Safety Report 4567326-2 (Version None)
Quarter: 2005Q1

REPORT INFORMATION
  Report Type: 
  Country: None (occurrence: None)
  Receive Date: 20050127
  Receipt Date: 20050118
  Transmission Date: 20050727
  Serious: Yes (Hospitalization, Other)
  Sender: FDA-Public Use
  Company Number: 2005015906

PATIENT
  Sex: Male
  Weight: 120.2032 kg

DRUGS (10)
  1. TIKOSYN [Suspect]
     Indication: VENTRICULAR TACHYCARDIA
     Dosage: 500 MCG (250 MCG, 2 IN 1 D) ,ORAL
     Route: 048
  2. METOPROLOL TARTRATE [Concomitant]
  3. CARVEDILOL [Concomitant]
  4. FOLIC ACID [Concomitant]
  5. DUTASTERIDE [Concomitant]
  6. CLOPIDOGREL BISULFATE [Concomitant]
  7. ACETYLSALICYLIC ACID SRT [Concomitant]
  8. LANSOPRAZOLE [Concomitant]
  9. DIGOXIN [Concomitant]
  10. ALPRAZOLAM [Concomitant]

REACTIONS (9)
  - AUTONOMIC NERVOUS SYSTEM IMBALANCE [None]
  - BLOOD PRESSURE SYSTOLIC INCREASED [None]
  - BUNDLE BRANCH BLOCK [None]
  - DILATATION VENTRICULAR [None]
  - ELECTROCARDIOGRAM QT CORRECTED INTERVAL PROLONGED [None]
  - HYPERHIDROSIS [None]
  - ORTHOSTATIC HYPOTENSION [None]
  - TREATMENT NONCOMPLIANCE [None]
  - VENTRICULAR TACHYCARDIA [None]
